FAERS Safety Report 18563357 (Version 1)
Quarter: 2020Q4

REPORT INFORMATION
  Report Type: Spontaneous
  Country: IT (occurrence: IT)
  Receive Date: 20201201
  Receipt Date: 20201201
  Transmission Date: 20210114
  Serious: Yes (Other)
  Sender: FDA-Public Use
  Company Number: IT-AMGEN-ITASP2020192399

PATIENT

DRUGS (5)
  1. PARICALCITOL. [Concomitant]
     Active Substance: PARICALCITOL
  2. CALCIUM [Concomitant]
     Active Substance: CALCIUM
  3. CINACALCET HCL [Suspect]
     Active Substance: CINACALCET HYDROCHLORIDE
     Indication: HYPERPARATHYROIDISM SECONDARY
     Dosage: UNK
     Route: 065
  4. ETELCALCETIDE [Suspect]
     Active Substance: ETELCALCETIDE
     Indication: HYPERPARATHYROIDISM SECONDARY
     Dosage: UNK
     Route: 065
  5. VITAMIN D [COLECALCIFEROL] [Concomitant]
     Active Substance: CHOLECALCIFEROL

REACTIONS (7)
  - Drug ineffective [Unknown]
  - Pruritus [Unknown]
  - Thrombocytopenia [Recovered/Resolved]
  - Diarrhoea [Unknown]
  - Treatment noncompliance [Unknown]
  - Overdose [Unknown]
  - Hypocalcaemia [Unknown]
